FAERS Safety Report 20947996 (Version 6)
Quarter: 2022Q3

REPORT INFORMATION
  Report Type: Report from Study
  Country: BR (occurrence: BR)
  Receive Date: 20220611
  Receipt Date: 20220718
  Transmission Date: 20221027
  Serious: Yes (Other)
  Sender: FDA-Public Use
  Company Number: BR-NOVARTISPH-NVSC2022BR131391

PATIENT
  Sex: Female

DRUGS (6)
  1. COSENTYX [Suspect]
     Active Substance: SECUKINUMAB
     Indication: Psoriasis
     Dosage: 300 MG, QW (FOR 5 WEEKS)
     Route: 065
     Dates: start: 20220512
  2. COSENTYX [Suspect]
     Active Substance: SECUKINUMAB
     Dosage: UNK
     Route: 065
  3. COSENTYX [Suspect]
     Active Substance: SECUKINUMAB
     Dosage: UNK
     Route: 065
     Dates: start: 20220608
  4. COSENTYX [Suspect]
     Active Substance: SECUKINUMAB
     Dosage: UNK
     Route: 065
  5. COSENTYX [Suspect]
     Active Substance: SECUKINUMAB
     Dosage: UNK
     Route: 065
     Dates: start: 20220706
  6. CLOBETASOL [Concomitant]
     Active Substance: CLOBETASOL
     Indication: Product used for unknown indication
     Dosage: UNK
     Route: 065

REACTIONS (29)
  - Skin cancer [Unknown]
  - Deafness unilateral [Unknown]
  - Nervousness [Unknown]
  - Pain [Unknown]
  - Skin discolouration [Recovering/Resolving]
  - Muscle spasms [Unknown]
  - Anxiety [Unknown]
  - Depression [Unknown]
  - Scab [Recovered/Resolved]
  - Tremor [Unknown]
  - Stress [Unknown]
  - Illness [Unknown]
  - Ill-defined disorder [Unknown]
  - Malaise [Unknown]
  - COVID-19 [Recovered/Resolved]
  - Arthralgia [Unknown]
  - Sleep deficit [Unknown]
  - Scratch [Unknown]
  - Rash macular [Unknown]
  - Thinking abnormal [Unknown]
  - Skin odour abnormal [Recovering/Resolving]
  - Pain in extremity [Unknown]
  - Movement disorder [Unknown]
  - Limb discomfort [Unknown]
  - Tooth disorder [Unknown]
  - Psoriasis [Recovering/Resolving]
  - Pruritus [Recovering/Resolving]
  - Skin lesion [Recovering/Resolving]
  - Skin exfoliation [Recovering/Resolving]
